FAERS Safety Report 10328780 (Version 1)
Quarter: 2014Q3

REPORT INFORMATION
  Report Type: Spontaneous
  Country: US (occurrence: None)
  Receive Date: 20140718
  Receipt Date: 20140718
  Transmission Date: 20150326
  Serious: No
  Sender: FDA-Public Use
  Company Number: None

PATIENT
  Sex: Female

DRUGS (16)
  1. OFLOXACIN. [Concomitant]
     Active Substance: OFLOXACIN
  2. AMOX-CLAV [Concomitant]
     Active Substance: AMOXICILLIN\CLAVULANATE POTASSIUM
  3. AFINITOR [Concomitant]
     Active Substance: EVEROLIMUS
  4. CITRACAL [Concomitant]
     Active Substance: CALCIUM CITRATE
  5. FLUOXETINE [Concomitant]
     Active Substance: FLUOXETINE\FLUOXETINE HYDROCHLORIDE
  6. AFINITOR [Suspect]
     Active Substance: EVEROLIMUS
     Indication: BREAST CANCER
     Route: 048
     Dates: start: 20140307
  7. CYCLOBENZAPA [Concomitant]
  8. OMEPRAZOLE. [Concomitant]
     Active Substance: OMEPRAZOLE
  9. AFRIN [Concomitant]
     Active Substance: OXYMETAZOLINE
  10. ASPIRIN. [Concomitant]
     Active Substance: ASPIRIN
  11. EXEMESTANE. [Concomitant]
     Active Substance: EXEMESTANE
  12. COENZYME Q10 [Concomitant]
     Active Substance: UBIDECARENONE
  13. NAPROXEN. [Concomitant]
     Active Substance: NAPROXEN
  14. HYDROCO/APAP [Concomitant]
     Active Substance: ACETAMINOPHEN\HYDROCODONE
  15. HYDROCHLOROT [Concomitant]
     Active Substance: HYDROCHLOROTHIAZIDE
  16. CLARITIN [Concomitant]
     Active Substance: LORATADINE

REACTIONS (1)
  - Stomatitis [None]
